FAERS Safety Report 14187201 (Version 1)
Quarter: 2017Q4

REPORT INFORMATION
  Report Type: Spontaneous
  Country: US (occurrence: US)
  Receive Date: 20171113
  Receipt Date: 20171113
  Transmission Date: 20180321
  Serious: Yes (Other)
  Sender: FDA-Public Use
  Company Number: None

PATIENT
  Age: 76 Year
  Sex: Male
  Weight: 96.5 kg

DRUGS (2)
  1. BENADRYL [Suspect]
     Active Substance: DIPHENHYDRAMINE HYDROCHLORIDE
     Indication: PREMEDICATION
     Dosage: ?          OTHER FREQUENCY:Q28DAYS;?
     Route: 040
     Dates: start: 20171106
  2. GAZYVA [Concomitant]
     Active Substance: OBINUTUZUMAB

REACTIONS (7)
  - Blood pressure decreased [None]
  - Oxygen saturation decreased [None]
  - Therapy cessation [None]
  - Nausea [None]
  - Vertigo [None]
  - Heart rate decreased [None]
  - Somnolence [None]

NARRATIVE: CASE EVENT DATE: 20171106
